FAERS Safety Report 16810169 (Version 1)
Quarter: 2019Q3

REPORT INFORMATION
  Report Type: Spontaneous
  Country: US (occurrence: US)
  Receive Date: 20190725
  Receipt Date: 20190725
  Transmission Date: 20191005
  Serious: No
  Sender: FDA-Public Use
  Company Number: None

PATIENT
  Age: 61 Year
  Sex: Female

DRUGS (1)
  1. ENBREL [Suspect]
     Active Substance: ETANERCEPT
     Route: 058
     Dates: start: 201902

REACTIONS (5)
  - Therapy non-responder [None]
  - Treatment noncompliance [None]
  - Rash [None]
  - Sensitive skin [None]
  - Pruritus [None]

NARRATIVE: CASE EVENT DATE: 20190725
